FAERS Safety Report 15379210 (Version 1)
Quarter: 2018Q3

REPORT INFORMATION
  Report Type: Spontaneous
  Country: US (occurrence: US)
  Receive Date: 20180906
  Receipt Date: 20180906
  Transmission Date: 20181010
  Serious: Yes (Disabling)
  Sender: FDA-Public Use
  Company Number: None

PATIENT
  Age: 58 Year
  Sex: Female
  Weight: 67.5 kg

DRUGS (1)
  1. CIPROFLOXACIN. [Suspect]
     Active Substance: CIPROFLOXACIN
     Indication: ANTIBIOTIC PROPHYLAXIS
     Dosage: ?          QUANTITY:6 TABLET(S);?
     Route: 048
     Dates: start: 20180822, end: 20180825

REACTIONS (8)
  - Muscular weakness [None]
  - Nausea [None]
  - Body temperature abnormal [None]
  - Depression [None]
  - Anxiety [None]
  - Hypoaesthesia [None]
  - Influenza like illness [None]
  - Chills [None]

NARRATIVE: CASE EVENT DATE: 20180824
